FAERS Safety Report 8352008-1 (Version None)
Quarter: 2012Q2

REPORT INFORMATION
  Report Type: 
  Country: None (occurrence: None)
  Receive Date: 20120509
  Receipt Date: 20120426
  Transmission Date: 20120825
  Serious: Yes (Hospitalization)
  Sender: FDA-Public Use
  Company Number: IMP_05866_2012

PATIENT
  Age: 84 Year
  Sex: Female

DRUGS (1)
  1. SOTALOL HCL [Suspect]
     Indication: ATRIAL FIBRILLATION
     Dosage: (40 MG BID ORAL)
     Route: 048

REACTIONS (11)
  - PALPITATIONS [None]
  - MITRAL VALVE INCOMPETENCE [None]
  - LEFT ATRIAL DILATATION [None]
  - DYSPNOEA [None]
  - AORTIC VALVE INCOMPETENCE [None]
  - DIZZINESS [None]
  - ATRIAL FIBRILLATION [None]
  - ELECTROCARDIOGRAM ST SEGMENT DEPRESSION [None]
  - SYNCOPE [None]
  - SICK SINUS SYNDROME [None]
  - LEFT VENTRICULAR HYPERTROPHY [None]
